FAERS Safety Report 6007233-1 (Version None)
Quarter: 2008Q4

REPORT INFORMATION
  Report Type: 
  Country: None (occurrence: None)
  Receive Date: 20081217
  Receipt Date: 20080208
  Transmission Date: 20090506
  Serious: Yes (Other)
  Sender: FDA-Public Use
  Company Number: US-ASTRAZENECA-2008UW02812

PATIENT
  Age: 52 Year
  Sex: Male

DRUGS (2)
  1. CRESTOR [Suspect]
     Route: 048
  2. ZETIA [Suspect]

REACTIONS (1)
  - BLOOD CREATINE PHOSPHOKINASE INCREASED [None]
